FAERS Safety Report 22340346 (Version 1)
Quarter: 2023Q2

REPORT INFORMATION
  Report Type: Report from Study
  Country: US (occurrence: US)
  Receive Date: 20230518
  Receipt Date: 20230518
  Transmission Date: 20230722
  Serious: Yes (Other)
  Sender: FDA-Public Use
  Company Number: US-JAZZ PHARMACEUTICALS-2023-US-007264

PATIENT
  Sex: Female

DRUGS (6)
  1. XYREM [Suspect]
     Active Substance: SODIUM OXYBATE
     Indication: Narcolepsy
     Dosage: UNK
  2. XYREM [Suspect]
     Active Substance: SODIUM OXYBATE
     Indication: Cataplexy
  3. XYREM [Suspect]
     Active Substance: SODIUM OXYBATE
     Indication: Somnolence
  4. SULFANILAMIDE [Suspect]
     Active Substance: SULFANILAMIDE
     Indication: Product used for unknown indication
     Dosage: UNK
  5. ERYTHROMYCIN [Suspect]
     Active Substance: ERYTHROMYCIN
     Indication: Product used for unknown indication
     Dosage: UNK
  6. XANAX [Suspect]
     Active Substance: ALPRAZOLAM
     Indication: Product used for unknown indication
     Dosage: UNK

REACTIONS (14)
  - Hysterectomy [Unknown]
  - Ovarian cancer [Unknown]
  - Rotator cuff syndrome [Unknown]
  - Apnoea [Unknown]
  - Back pain [Recovered/Resolved]
  - Muscle spasms [Unknown]
  - Chronic obstructive pulmonary disease [Unknown]
  - Emphysema [Unknown]
  - Large intestine polyp [Unknown]
  - Hyperlipidaemia [Unknown]
  - Goitre [Unknown]
  - Nicotine dependence [Unknown]
  - Hypertension [Unknown]
  - Drug hypersensitivity [Unknown]
